FAERS Safety Report 17013724 (Version 2)
Quarter: 2019Q4

REPORT INFORMATION
  Report Type: Report from Study
  Country: None (occurrence: NZ)
  Receive Date: 20191110
  Receipt Date: 20191126
  Transmission Date: 20200122
  Serious: Yes (Hospitalization)
  Sender: FDA-Public Use
  Company Number: NZ-ABBVIE-19K-118-2982441-00

PATIENT
  Age: 10 Year
  Sex: Female

DRUGS (4)
  1. HUMIRA [Suspect]
     Active Substance: ADALIMUMAB
     Indication: CROHN^S DISEASE
     Route: 058
     Dates: start: 20191003, end: 2019
  2. MORPHINE [Concomitant]
     Active Substance: MORPHINE
     Indication: PRODUCT USED FOR UNKNOWN INDICATION
  3. HUMIRA [Suspect]
     Active Substance: ADALIMUMAB
     Route: 058
     Dates: start: 2019
  4. TRAMADOL. [Concomitant]
     Active Substance: TRAMADOL
     Indication: PRODUCT USED FOR UNKNOWN INDICATION

REACTIONS (15)
  - Intestinal perforation [Recovering/Resolving]
  - Sepsis [Recovering/Resolving]
  - Cellulitis [Recovering/Resolving]
  - Vomiting [Recovering/Resolving]
  - Gastrointestinal motility disorder [Recovering/Resolving]
  - Infection [Recovering/Resolving]
  - Pelvic infection [Unknown]
  - General physical health deterioration [Recovering/Resolving]
  - Intestinal obstruction [Recovering/Resolving]
  - Pelvic fluid collection [Unknown]
  - Immune system disorder [Recovering/Resolving]
  - Loss of consciousness [Recovering/Resolving]
  - Fall [Recovering/Resolving]
  - Screaming [Recovered/Resolved]
  - Crohn^s disease [Recovering/Resolving]

NARRATIVE: CASE EVENT DATE: 2019
